FAERS Safety Report 16438608 (Version 2)
Quarter: 2019Q3

REPORT INFORMATION
  Report Type: Spontaneous
  Country: JP (occurrence: JP)
  Receive Date: 20190617
  Receipt Date: 20190703
  Transmission Date: 20191004
  Serious: Yes (Hospitalization, Other)
  Sender: FDA-Public Use
  Company Number: JP-SA-2019SA155965

PATIENT
  Age: 61 Year
  Sex: Female

DRUGS (3)
  1. GLIMEPIRIDE. [Suspect]
     Active Substance: GLIMEPIRIDE
     Indication: DIABETES MELLITUS
     Dosage: UNK UNK, UNK
     Route: 065
     Dates: start: 201601
  2. LINAGLIPTIN [Suspect]
     Active Substance: LINAGLIPTIN
     Indication: DIABETES MELLITUS
     Dosage: UNK UNK, UNK
     Route: 065
     Dates: start: 201601
  3. METFORMIN HYDROCHLORIDE. [Suspect]
     Active Substance: METFORMIN HYDROCHLORIDE
     Indication: DIABETES MELLITUS
     Dosage: UNK UNK, UNK
     Route: 065
     Dates: start: 201601

REACTIONS (8)
  - Thirst [Recovered/Resolved]
  - Polyuria [Recovered/Resolved]
  - Therapeutic response decreased [Unknown]
  - Fatigue [Recovered/Resolved]
  - Hyperglycaemia [Recovered/Resolved]
  - Weight decreased [Recovered/Resolved]
  - Diabetes mellitus inadequate control [Recovered/Resolved]
  - Insulin C-peptide decreased [Recovered/Resolved]
